FAERS Safety Report 4683054-7 (Version None)
Quarter: 2005Q2

REPORT INFORMATION
  Report Type: 
  Country: None (occurrence: None)
  Receive Date: 20050606
  Receipt Date: 20050527
  Transmission Date: 20051028
  Serious: Yes (Hospitalization, Disabling, Other)
  Sender: FDA-Public Use
  Company Number: US-MERCK-0506USA00340

PATIENT
  Age: 63 Year
  Sex: Female
  Weight: 96 kg

DRUGS (9)
  1. VIOXX [Suspect]
     Indication: ARTHRALGIA
     Route: 048
     Dates: start: 20000101, end: 20041001
  2. VIOXX [Suspect]
     Indication: BACK PAIN
     Route: 048
     Dates: start: 20000101, end: 20041001
  3. TRAZODONE HYDROCHLORIDE [Concomitant]
     Route: 065
  4. PRAVACHOL [Concomitant]
     Route: 065
     Dates: start: 20040401
  5. RANITIDINE [Concomitant]
     Route: 048
  6. LEVOTHROID [Concomitant]
     Route: 065
  7. PLAVIX [Concomitant]
     Route: 065
     Dates: start: 20040401
  8. DEPO-ESTRADIOL [Concomitant]
     Route: 065
  9. LISINOPRIL [Concomitant]
     Route: 048
     Dates: start: 20040601

REACTIONS (23)
  - ABDOMINAL PAIN UPPER [None]
  - ANGINA UNSTABLE [None]
  - AORTIC VALVE INCOMPETENCE [None]
  - ASTHMA [None]
  - BACK DISORDER [None]
  - BACK PAIN [None]
  - BLOOD CHOLESTEROL INCREASED [None]
  - BRADYCARDIA [None]
  - CHEST PAIN [None]
  - CONVULSION [None]
  - DERMATITIS ATOPIC [None]
  - DYSPNOEA [None]
  - EAR PAIN [None]
  - EMOTIONAL DISTRESS [None]
  - GASTROOESOPHAGEAL REFLUX DISEASE [None]
  - HEART RATE IRREGULAR [None]
  - HYPERTENSION [None]
  - INSOMNIA [None]
  - MYOCARDIAL INFARCTION [None]
  - OEDEMA PERIPHERAL [None]
  - OTITIS MEDIA [None]
  - URINARY TRACT INFECTION [None]
  - VENTRICULAR HYPERTROPHY [None]
